FAERS Safety Report 9677106 (Version 2)
Quarter: 2013Q4

REPORT INFORMATION
  Report Type: Spontaneous
  Country: DE (occurrence: DE)
  Receive Date: 20131108
  Receipt Date: 20131108
  Transmission Date: 20140711
  Serious: Yes (Hospitalization, Other)
  Sender: FDA-Public Use
  Company Number: DE-009507513-1309DEU004367

PATIENT
  Age: 28 Year
  Sex: Female
  Weight: 65 kg

DRUGS (5)
  1. REMERGIL SOLTAB [Suspect]
     Indication: DEPRESSION
     Dosage: UNK
     Route: 048
     Dates: start: 20110214, end: 20110323
  2. IBUPROFEN [Concomitant]
     Indication: MIGRAINE
     Dosage: UNK
     Dates: start: 20110310, end: 20110310
  3. PASPERTIN [Concomitant]
     Indication: MIGRAINE
     Dosage: UNK
     Dates: start: 20110310, end: 20110310
  4. TAVOR (LORAZEPAM) [Concomitant]
     Indication: ANXIETY
     Dosage: UNK
     Dates: start: 20110214, end: 20110222
  5. TAVOR (LORAZEPAM) [Concomitant]
     Indication: TENSION

REACTIONS (7)
  - Galactorrhoea [Recovered/Resolved]
  - Breast pain [Recovered/Resolved]
  - Fatigue [Recovered/Resolved]
  - Skin oedema [Recovered/Resolved]
  - Blood prolactin increased [Recovered/Resolved]
  - Hepatic enzyme increased [Recovered/Resolved]
  - Blood creatine phosphokinase increased [Recovered/Resolved]
